FAERS Safety Report 25726795 (Version 2)
Quarter: 2025Q3

REPORT INFORMATION
  Report Type: Spontaneous
  Country: GB (occurrence: GB)
  Receive Date: 20250826
  Receipt Date: 20250910
  Transmission Date: 20251020
  Serious: Yes (Other)
  Sender: AUROBINDO
  Company Number: GB-Accord-501244

PATIENT
  Age: 70 Year
  Sex: Female

DRUGS (9)
  1. AMLODIPINE [Interacting]
     Active Substance: AMLODIPINE BESYLATE
     Indication: Product used for unknown indication
     Route: 065
     Dates: end: 20250801
  2. FUROSEMIDE [Interacting]
     Active Substance: FUROSEMIDE
     Indication: Diuretic therapy
     Route: 065
     Dates: end: 20250711
  3. QUETIAPINE [Suspect]
     Active Substance: QUETIAPINE
     Indication: Product used for unknown indication
     Route: 065
     Dates: start: 202506
  4. AMILORIDE [Interacting]
     Active Substance: AMILORIDE
     Indication: Diuretic therapy
     Route: 065
     Dates: end: 20250711
  5. QUININE [Concomitant]
     Active Substance: QUININE
     Indication: Muscle spasms
     Dosage: 300 MILLIGRAM, AT BED TIME (STRENGTH: 300MGONE TABLET ONCE DAILY)
     Route: 065
  6. ATORVASTATIN [Concomitant]
     Active Substance: ATORVASTATIN
     Indication: Product used for unknown indication
     Route: 065
  7. EZETIMIBE [Concomitant]
     Active Substance: EZETIMIBE
     Indication: Product used for unknown indication
     Route: 065
  8. LANSOPRAZOLE [Concomitant]
     Active Substance: LANSOPRAZOLE
     Indication: Product used for unknown indication
     Route: 065
  9. METFORMIN [Concomitant]
     Active Substance: METFORMIN HYDROCHLORIDE
     Indication: Product used for unknown indication
     Dosage: 850 MILLIGRAM, 3 TIMES A DAY
     Route: 065

REACTIONS (5)
  - Hyponatraemia [Unknown]
  - Pneumonia [Unknown]
  - Transient ischaemic attack [Unknown]
  - Hypotension [Recovered/Resolved]
  - Drug interaction [Unknown]

NARRATIVE: CASE EVENT DATE: 20250101
